FAERS Safety Report 13523943 (Version 3)
Quarter: 2018Q2

REPORT INFORMATION
  Report Type: Spontaneous
  Country: US (occurrence: US)
  Receive Date: 20170508
  Receipt Date: 20180508
  Transmission Date: 20180711
  Serious: No
  Sender: FDA-Public Use
  Company Number: US-VIFOR (INTERNATIONAL) INC.-VIT-2017-00263

PATIENT
  Age: 79 Year
  Sex: Male
  Weight: 81.72 kg

DRUGS (8)
  1. VELTASSA [Suspect]
     Active Substance: PATIROMER
     Indication: HYPERKALAEMIA
     Route: 048
     Dates: start: 20161209
  2. AMLODIPINE BESILATE [Concomitant]
     Active Substance: AMLODIPINE BESYLATE
  3. CYANOCOBALAMIN. [Concomitant]
     Active Substance: CYANOCOBALAMIN
  4. ACETYLSALICYLIC ACID [Concomitant]
     Active Substance: ASPIRIN
  5. VELTASSA [Suspect]
     Active Substance: PATIROMER
     Route: 048
     Dates: start: 20161210
  6. FOLIC ACID. [Concomitant]
     Active Substance: FOLIC ACID
  7. FINASTERIDE. [Concomitant]
     Active Substance: FINASTERIDE
  8. ROCALTROL [Concomitant]
     Active Substance: CALCITRIOL

REACTIONS (4)
  - Constipation [Recovered/Resolved]
  - Abdominal discomfort [Recovering/Resolving]
  - Faeces hard [Recovered/Resolved]
  - Off label use [Unknown]

NARRATIVE: CASE EVENT DATE: 201612
